FAERS Safety Report 18299134 (Version 1)
Quarter: 2020Q3

REPORT INFORMATION
  Report Type: Spontaneous
  Country: GB (occurrence: GB)
  Receive Date: 20200922
  Receipt Date: 20200922
  Transmission Date: 20201103
  Serious: Yes (Other)
  Sender: FDA-Public Use
  Company Number: GB-PFIZER INC-2020360872

PATIENT
  Age: 68 Year
  Sex: Male

DRUGS (4)
  1. AMLODIPINE BESILATE [Suspect]
     Active Substance: AMLODIPINE BESYLATE
     Dosage: UNK
     Route: 048
  2. TAMSULOSINE ZENTIVA [Interacting]
     Active Substance: TAMSULOSIN HYDROCHLORIDE
     Indication: PROSTATE CANCER
     Dosage: 400 UG, 1X/DAY
     Route: 048
     Dates: end: 20200906
  3. GOSERELINUM [Concomitant]
     Active Substance: GOSERELIN
     Dosage: UNK
  4. SOLIFENACIN [Interacting]
     Active Substance: SOLIFENACIN
     Indication: PROSTATE CANCER
     Dosage: UNK
     Dates: end: 20200906

REACTIONS (5)
  - Potentiating drug interaction [Recovered/Resolved]
  - Hypertensive crisis [Not Recovered/Not Resolved]
  - Blood pressure fluctuation [Not Recovered/Not Resolved]
  - Migraine [Not Recovered/Not Resolved]
  - Dyspnoea [Not Recovered/Not Resolved]
